FAERS Safety Report 5272164-1 (Version None)
Quarter: 2007Q1

REPORT INFORMATION
  Report Type: 
  Country: None (occurrence: None)
  Receive Date: 20070322
  Receipt Date: 20070321
  Transmission Date: 20070707
  Serious: Yes (Life-Threatening, Other)
  Sender: FDA-Public Use
  Company Number: US-BAYER-200710113BWH

PATIENT
  Age: 62 Year
  Sex: Male

DRUGS (8)
  1. TRASYLOL [Suspect]
     Indication: CORONARY ARTERY BYPASS
     Dosage: UNIT DOSE: 2000000 KIU
     Route: 042
     Dates: start: 20061107, end: 20061107
  2. BACLOFEN [Concomitant]
  3. METOPROLOL SUCCINATE [Concomitant]
  4. FERROUS SULFATE [Concomitant]
  5. EPOETIN [Concomitant]
  6. PLAVIX [Concomitant]
     Dates: start: 20061107
  7. HEPARIN [Concomitant]
  8. PROTAMINE SULFATE [Concomitant]

REACTIONS (5)
  - BRADYCARDIA [None]
  - CARDIAC ARREST [None]
  - ELECTROCARDIOGRAM ST SEGMENT ABNORMAL [None]
  - MEDIASTINITIS [None]
  - VASCULAR GRAFT OCCLUSION [None]
